FAERS Safety Report 13993644 (Version 8)
Quarter: 2018Q1

REPORT INFORMATION
  Report Type: Report from Study
  Country: ES (occurrence: ES)
  Receive Date: 20170920
  Receipt Date: 20180111
  Transmission Date: 20180508
  Serious: Yes (Hospitalization)
  Sender: FDA-Public Use
  Company Number: ES-AMGEN-ESPCT2017141798

PATIENT
  Age: 41 Year
  Sex: Female
  Weight: 49.7 kg

DRUGS (9)
  1. TALIMOGENE LAHERPAREPVEC [Suspect]
     Active Substance: TALIMOGENE LAHERPAREPVEC
     Indication: SQUAMOUS CELL CARCINOMA OF HEAD AND NECK
     Dosage: 2 ML, Q3WK
     Route: 026
     Dates: start: 20170829, end: 20170829
  2. FENTANYL. [Concomitant]
     Active Substance: FENTANYL
     Dosage: 18-100 MCG, 8-12 UNK AND 450 MG IV, QD, ALSO PRN
     Dates: start: 2016
  3. GABAPENTIN. [Concomitant]
     Active Substance: GABAPENTIN
     Dosage: 200 MG, UNK
     Route: 048
     Dates: start: 20170914, end: 20170915
  4. OMEPRAZOL [Concomitant]
     Active Substance: OMEPRAZOLE
     Dosage: 20 MG, UNK
     Route: 048
     Dates: start: 2016
  5. PEMBROLIZUMAB. [Suspect]
     Active Substance: PEMBROLIZUMAB
     Indication: SQUAMOUS CELL CARCINOMA OF HEAD AND NECK
     Dosage: 200 MG, Q3WK
     Route: 042
     Dates: start: 20170829
  6. NOLOTIL (METAMIZOLE MAGNESIUM) [Concomitant]
     Active Substance: METAMIZOLE MAGNESIUM
     Dosage: 2 MG, UNK
     Route: 050
     Dates: start: 20170912, end: 20170917
  7. DIAZEPAM. [Concomitant]
     Active Substance: DIAZEPAM
     Indication: ANXIETY
     Dosage: 5 MG, AS NECESSARY
     Route: 048
     Dates: start: 2016
  8. EBASTEL [Concomitant]
     Active Substance: EBASTINE
     Dosage: 20 MG, UNK
     Route: 048
     Dates: start: 2017
  9. ATARAX [Concomitant]
     Active Substance: HYDROXYZINE HYDROCHLORIDE
     Dosage: UNK
     Dates: start: 2017

REACTIONS (1)
  - Pain [Recovered/Resolved]

NARRATIVE: CASE EVENT DATE: 20170916
